FAERS Safety Report 10251527 (Version 1)
Quarter: 2014Q2

REPORT INFORMATION
  Report Type: Spontaneous
  Country: GB (occurrence: GB)
  Receive Date: 20140623
  Receipt Date: 20140623
  Transmission Date: 20141212
  Serious: Yes (Other)
  Sender: FDA-Public Use
  Company Number: GB-JNJFOC-20140611728

PATIENT
  Age: 80 Year
  Sex: Female
  Weight: 82 kg

DRUGS (10)
  1. XARELTO [Suspect]
     Indication: PRODUCT USED FOR UNKNOWN INDICATION
     Route: 048
     Dates: start: 20140310
  2. ASPIRIN [Concomitant]
     Indication: PROPHYLAXIS
     Route: 065
     Dates: start: 20140117, end: 20140427
  3. PARACETAMOL [Concomitant]
     Route: 065
     Dates: start: 20140425, end: 20140523
  4. ADCAL [Concomitant]
     Route: 065
     Dates: start: 20140117, end: 20140411
  5. ALENDRONIC ACID [Concomitant]
     Route: 065
     Dates: start: 20140117, end: 20140411
  6. ALENDRONIC ACID [Concomitant]
     Route: 065
     Dates: start: 20140510
  7. ATORVASTATIN [Concomitant]
     Indication: PROPHYLAXIS
     Route: 065
     Dates: start: 20140117, end: 20140411
  8. DOXAZOSIN [Concomitant]
     Route: 065
     Dates: start: 20140530
  9. RAMIPRIL [Concomitant]
     Route: 065
     Dates: start: 20140117, end: 20140411
  10. BRINZOLAMIDE [Concomitant]
     Route: 065
     Dates: start: 20140530

REACTIONS (1)
  - Anaemia [Recovering/Resolving]
